FAERS Safety Report 26113968 (Version 1)
Quarter: 2025Q4

REPORT INFORMATION
  Report Type: Report from Study
  Country: US (occurrence: US)
  Receive Date: 20251202
  Receipt Date: 20251202
  Transmission Date: 20260118
  Serious: Yes (Hospitalization, Other)
  Sender: GILEAD
  Company Number: US-GILEAD-2025-0738342

PATIENT
  Sex: Female

DRUGS (5)
  1. AMBRISENTAN [Suspect]
     Active Substance: AMBRISENTAN
     Indication: Product used for unknown indication
     Route: 065
  2. OHTUVAYRE [Suspect]
     Active Substance: ENSIFENTRINE
     Indication: Chronic obstructive pulmonary disease
     Dosage: 3 MG, BID
     Route: 055
     Dates: start: 202408
  3. OHTUVAYRE [Suspect]
     Active Substance: ENSIFENTRINE
     Indication: Emphysema
  4. OHTUVAYRE [Suspect]
     Active Substance: ENSIFENTRINE
     Indication: Coccidioidomycosis
  5. TADALAFIL [Concomitant]
     Active Substance: TADALAFIL

REACTIONS (8)
  - Pneumonia [Unknown]
  - Eye pain [Unknown]
  - Facial pain [Unknown]
  - Pain [Unknown]
  - Bendopnoea [Unknown]
  - Fatigue [Unknown]
  - Dyspnoea exertional [Unknown]
  - Dyspnoea [Unknown]

NARRATIVE: CASE EVENT DATE: 20250101
